FAERS Safety Report 24541304 (Version 1)
Quarter: 2024Q4

REPORT INFORMATION
  Report Type: Spontaneous
  Country: NL (occurrence: NL)
  Receive Date: 20241023
  Receipt Date: 20241023
  Transmission Date: 20250115
  Serious: Yes (Hospitalization)
  Sender: MYLAN
  Company Number: None

PATIENT
  Age: 73 Year
  Sex: Female
  Weight: 71 kg

DRUGS (10)
  1. GABAPENTIN [Suspect]
     Active Substance: GABAPENTIN
     Indication: Pruritus
     Dosage: 300 MILLIGRAM, QD, 1 PIECE ONCE A DAY
     Route: 065
     Dates: start: 20240802, end: 20241003
  2. APIXABAN [Concomitant]
     Active Substance: APIXABAN
     Dosage: 5 MILLIGRAM, TABLET, 5 MG (MILLIGRAM)
     Route: 065
  3. AZELASTINE HYDROCHLORIDE\FLUTICASONE PROPIONATE [Concomitant]
     Active Substance: AZELASTINE HYDROCHLORIDE\FLUTICASONE PROPIONATE
     Dosage: UNK, NASAL SPRAY, 137/50 ?G/DOSES (MICROGRAM PER DOSES)
     Route: 065
  4. BECLOMETHASONE\FORMOTEROL [Concomitant]
     Active Substance: BECLOMETHASONE\FORMOTEROL
     Dosage: UNK, AEROSOL, 200/6 ?G/DOSES (MICROGRAM PER DOSES)
     Route: 065
  5. COSMETICS [Concomitant]
     Active Substance: COSMETICS
     Dosage: UNK, OINTMENT, BASIC FOR CETOMACROGOL SALF
     Route: 065
  6. DESOXIMETASONE [Concomitant]
     Active Substance: DESOXIMETASONE
     Dosage: UNK, 2.5 MILLIGRAM PER GRAM, SPREAD (EMULSION), 2.5 MG/G (MILLIGRAMS PER GRAM)
     Route: 065
  7. LEVOCETIRIZINE [Concomitant]
     Active Substance: LEVOCETIRIZINE
     Dosage: 5 MILLIGRAM, FILM-COATED TABLET, 5 MG
     Route: 065
  8. LEVOTHYROXINE [Concomitant]
     Active Substance: LEVOTHYROXINE
     Dosage: 100 MICROGRAM, CAPSULE, 100 ?G (MICROGRAM)
     Route: 065
  9. PANTOPRAZOLE SODIUM [Concomitant]
     Active Substance: PANTOPRAZOLE SODIUM
     Dosage: 20 MILLIGRAM, TABLET 20 MG
     Route: 065
  10. SIMVASTATIN [Concomitant]
     Active Substance: SIMVASTATIN
     Dosage: 20 MILLIGRAM, FILM-COATED TABLET, 20 MG
     Route: 065

REACTIONS (1)
  - Purpura [Recovering/Resolving]
